FAERS Safety Report 5653013-6 (Version None)
Quarter: 2008Q1

REPORT INFORMATION
  Report Type: 
  Country: None (occurrence: None)
  Receive Date: 20080306
  Receipt Date: 20080225
  Transmission Date: 20080703
  Serious: Yes (Other)
  Sender: FDA-Public Use
  Company Number: PHEH2008US02368

PATIENT
  Sex: Female

DRUGS (2)
  1. EXJADE [Suspect]
  2. CYCLOSPORINE [Suspect]
     Route: 048

REACTIONS (1)
  - HAEMOGLOBIN DECREASED [None]
